FAERS Safety Report 13989080 (Version 1)
Quarter: 2017Q3

REPORT INFORMATION
  Report Type: Spontaneous
  Country: FR (occurrence: FR)
  Receive Date: 20170919
  Receipt Date: 20170919
  Transmission Date: 20171128
  Serious: Yes (Other)
  Sender: FDA-Public Use
  Company Number: FR-BAYER-2017-175983

PATIENT
  Age: 42 Year
  Sex: Female

DRUGS (1)
  1. MIRENA [Suspect]
     Active Substance: LEVONORGESTREL
     Indication: CONTRACEPTION
     Dosage: 20 MCG/24HR, CONT
     Route: 015
     Dates: start: 20101130, end: 20170829

REACTIONS (8)
  - Weight increased [Unknown]
  - Acne [Unknown]
  - Myalgia [Unknown]
  - Depression [Unknown]
  - Loss of libido [Unknown]
  - Hypertrichosis [Unknown]
  - Suicidal ideation [Unknown]
  - Breast pain [Unknown]

NARRATIVE: CASE EVENT DATE: 201101
